FAERS Safety Report 10475481 (Version 1)
Quarter: 2014Q3

REPORT INFORMATION
  Report Type: Spontaneous
  Country: US (occurrence: None)
  Receive Date: 20140924
  Receipt Date: 20140924
  Transmission Date: 20150326
  Serious: Yes (Hospitalization)
  Sender: FDA-Public Use
  Company Number: None

PATIENT
  Age: 68 Year
  Sex: Male
  Weight: 103 kg

DRUGS (7)
  1. COUMADIN [Suspect]
     Active Substance: WARFARIN SODIUM
     Indication: ATRIAL FIBRILLATION
     Dosage: M,TU,THR, F, S, SUN?CHRONIC
     Route: 048
  2. COREG [Concomitant]
     Active Substance: CARVEDILOL
  3. MAG OX [Concomitant]
     Active Substance: MAGNESIUM OXIDE
  4. RAMIPRIL. [Concomitant]
     Active Substance: RAMIPRIL
  5. DILTIAZEM [Concomitant]
     Active Substance: DILTIAZEM
  6. CLONIDINE. [Concomitant]
     Active Substance: CLONIDINE
  7. LIPITOR [Concomitant]
     Active Substance: ATORVASTATIN CALCIUM

REACTIONS (4)
  - Inflammatory bowel disease [None]
  - Colitis ischaemic [None]
  - Gastritis [None]
  - Haematochezia [None]

NARRATIVE: CASE EVENT DATE: 20140329
